FAERS Safety Report 9080925 (Version 1)
Quarter: 2013Q1

REPORT INFORMATION
  Report Type: Report from Study
  Country: US (occurrence: US)
  Receive Date: 20130130
  Receipt Date: 20130130
  Transmission Date: 20140127
  Serious: No
  Sender: FDA-Public Use
  Company Number: US-ABBOTT-12P-163-0966489-00

PATIENT
  Age: 41 Year
  Sex: Female

DRUGS (3)
  1. HUMIRA 40 MG/0.8 ML PEN [Suspect]
     Indication: PSORIASIS
  2. ALLERGY SHOTS [Suspect]
     Indication: SEASONAL ALLERGY
  3. UNITHROID [Concomitant]
     Indication: HYPOTHYROIDISM
     Dosage: DAILY

REACTIONS (3)
  - Fatigue [Not Recovered/Not Resolved]
  - Vertigo [Not Recovered/Not Resolved]
  - Sinusitis [Not Recovered/Not Resolved]
